FAERS Safety Report 8545168-0 (Version None)
Quarter: 2012Q3

REPORT INFORMATION
  Report Type: 
  Country: None (occurrence: None)
  Receive Date: 20120727
  Receipt Date: 20120725
  Transmission Date: 20120928
  Serious: Yes (Death, Hospitalization)
  Sender: FDA-Public Use
  Company Number: US-B.I. PHARMACEUTICALS,INC./RIDGEFIELD-2012-BP-14625BP

PATIENT
  Age: 85 Year
  Sex: Male

DRUGS (4)
  1. METOPROLOL [Concomitant]
  2. AMLODIPINE [Concomitant]
     Indication: HYPERTENSION
  3. AMIODARONE HCL [Concomitant]
  4. PRADAXA [Suspect]
     Indication: ATRIAL FIBRILLATION
     Dosage: 150 MG
     Route: 048
     Dates: start: 20120101, end: 20120101

REACTIONS (3)
  - EMBOLIC STROKE [None]
  - SUBDURAL HAEMATOMA [None]
  - FALL [None]
